FAERS Safety Report 5240476-3 (Version None)
Quarter: 2007Q1

REPORT INFORMATION
  Report Type: 
  Country: None (occurrence: None)
  Receive Date: 20070219
  Receipt Date: 20070213
  Transmission Date: 20070707
  Serious: Yes (Other)
  Sender: FDA-Public Use
  Company Number: US-GLAXOSMITHKLINE-A0639512A

PATIENT

DRUGS (1)
  1. LAMICTAL [Suspect]
     Indication: PARTIAL SEIZURES

REACTIONS (2)
  - DRUG EXPOSURE DURING PREGNANCY [None]
  - JUVENILE ARTHRITIS [None]
